FAERS Safety Report 8172188-0 (Version None)
Quarter: 2012Q1

REPORT INFORMATION
  Report Type: 
  Country: None (occurrence: None)
  Receive Date: 20120228
  Receipt Date: 20120220
  Transmission Date: 20120608
  Serious: Yes (Hospitalization, Other)
  Sender: FDA-Public Use
  Company Number: US-ASTRAZENECA-2012SE11837

PATIENT
  Sex: Female

DRUGS (2)
  1. CRESTOR [Suspect]
     Route: 048
  2. CRESTOR [Suspect]
     Route: 048

REACTIONS (5)
  - HYPERTENSION [None]
  - TYPE 2 DIABETES MELLITUS [None]
  - THYROID CANCER [None]
  - LIPIDS ABNORMAL [None]
  - LABORATORY TEST ABNORMAL [None]
